FAERS Safety Report 6507372-2 (Version None)
Quarter: 2009Q4

REPORT INFORMATION
  Report Type: 
  Country: None (occurrence: None)
  Receive Date: 20091221
  Receipt Date: 20091211
  Transmission Date: 20100525
  Serious: Yes (Other)
  Sender: FDA-Public Use
  Company Number: TW-ROCHE-672172

PATIENT
  Sex: Female

DRUGS (6)
  1. TRASTUZUMAB [Suspect]
     Indication: BREAST CANCER
     Dosage: 4 MG/KG
     Route: 042
     Dates: start: 20090917, end: 20091015
  2. TRASTUZUMAB [Suspect]
     Route: 042
     Dates: start: 20091119
  3. DOCETAXEL [Suspect]
     Indication: BREAST CANCER
     Dosage: 75 MG/M2, 3/WEEK
     Route: 042
     Dates: start: 20090917, end: 20091007
  4. DOCETAXEL [Suspect]
     Dosage: 75 MG/M2, 3/WEEK
     Route: 042
     Dates: start: 20090917, end: 20091007
  5. MIRTAZAPINE [Concomitant]
     Indication: DRUG USE FOR UNKNOWN INDICATION
     Dosage: UNK
     Dates: start: 20090930, end: 20091028
  6. ZOLPIDEM TARTRATE [Concomitant]
     Indication: DRUG USE FOR UNKNOWN INDICATION
     Dosage: UNK
     Dates: start: 20090930

REACTIONS (1)
  - ALANINE AMINOTRANSFERASE INCREASED [None]
